FAERS Safety Report 20899712 (Version 1)
Quarter: 2022Q2

REPORT INFORMATION
  Report Type: Spontaneous
  Country: US (occurrence: US)
  Receive Date: 20220601
  Receipt Date: 20220601
  Transmission Date: 20220721
  Serious: No
  Sender: FDA-Public Use
  Company Number: US-AUROBINDO-AUR-APL-2021-049181

PATIENT
  Age: 69 Year
  Sex: Male
  Weight: 81.6 kg

DRUGS (2)
  1. ONDANSETRON [Suspect]
     Active Substance: ONDANSETRON
     Indication: Nausea
     Dosage: 1 DOSAGE FORM, 3 TIMES A DAY, AS NEEDED
     Route: 048
     Dates: start: 20210910, end: 20211120
  2. LISINOPRIL [Concomitant]
     Active Substance: LISINOPRIL
     Indication: Blood pressure measurement
     Dosage: 10 MILLIGRAM
     Route: 065

REACTIONS (1)
  - Constipation [Not Recovered/Not Resolved]
